FAERS Safety Report 7913837-9 (Version None)
Quarter: 2011Q4

REPORT INFORMATION
  Report Type: 
  Country: None (occurrence: None)
  Receive Date: 20111110
  Receipt Date: 20111104
  Transmission Date: 20120403
  Serious: Yes (Hospitalization, Other)
  Sender: FDA-Public Use
  Company Number: 2011SP019415

PATIENT
  Age: 36 Year
  Sex: Female
  Weight: 64.8644 kg

DRUGS (2)
  1. NUVARING [Suspect]
     Indication: ORAL CONTRACEPTION
     Dates: start: 20090101, end: 20100701
  2. SLIM QUICK [Concomitant]

REACTIONS (11)
  - ISCHAEMIC STROKE [None]
  - FALL [None]
  - HYPOTENSION [None]
  - MYALGIA [None]
  - THROMBOSIS [None]
  - ENCEPHALOMALACIA [None]
  - DEPRESSION [None]
  - PAIN IN EXTREMITY [None]
  - CAROTID ARTERY DISSECTION [None]
  - MYOSITIS [None]
  - CORNEAL ABRASION [None]
